FAERS Safety Report 18589323 (Version 1)
Quarter: 2020Q4

REPORT INFORMATION
  Report Type: Spontaneous
  Country: SE (occurrence: SE)
  Receive Date: 20201208
  Receipt Date: 20201208
  Transmission Date: 20210114
  Serious: Yes (Death, Hospitalization, Other)
  Sender: FDA-Public Use
  Company Number: SE-BIOVITRUM-2020SE7187

PATIENT
  Sex: Female

DRUGS (1)
  1. ANAKINRA [Suspect]
     Active Substance: ANAKINRA
     Indication: COVID-19

REACTIONS (5)
  - Arrhythmia [Fatal]
  - Aortic dissection [Fatal]
  - Respiratory failure [Recovered/Resolved]
  - Off label use [Recovered/Resolved]
  - Chest pain [Unknown]
